FAERS Safety Report 7928729-9 (Version None)
Quarter: 2011Q4

REPORT INFORMATION
  Report Type: 
  Country: None (occurrence: None)
  Receive Date: 20111118
  Receipt Date: 20111114
  Transmission Date: 20120403
  Serious: Yes (Other)
  Sender: FDA-Public Use
  Company Number: CHPA2011US016040

PATIENT
  Age: 68 Year
  Sex: Female

DRUGS (4)
  1. ANTIHYPERTENSIVE DRUGS [Concomitant]
     Indication: HYPERTENSION
  2. VOLTAREN [Suspect]
     Indication: NEUROPATHY PERIPHERAL
  3. DRUG THERAPY NOS [Concomitant]
     Indication: THYROID DISORDER
  4. VOLTAREN [Suspect]
     Indication: ARTHRITIS
     Dosage: UNK, 2-3 TIMES PER DAY
     Route: 061
     Dates: start: 20110201

REACTIONS (5)
  - UTERINE CANCER [None]
  - UNDERDOSE [None]
  - WRONG TECHNIQUE IN DRUG USAGE PROCESS [None]
  - THERAPEUTIC RESPONSE UNEXPECTED [None]
  - OFF LABEL USE [None]
